FAERS Safety Report 16693875 (Version 1)
Quarter: 2019Q3

REPORT INFORMATION
  Report Type: Spontaneous
  Country: US (occurrence: US)
  Receive Date: 20190626
  Receipt Date: 20190626
  Transmission Date: 20191004
  Serious: No
  Sender: FDA-Public Use
  Company Number: None

PATIENT
  Age: 58 Year
  Sex: Female

DRUGS (1)
  1. PREZISTA [Suspect]
     Active Substance: DARUNAVIR ETHANOLATE
     Dates: start: 201801

REACTIONS (3)
  - Blood cholesterol increased [None]
  - Weight increased [None]
  - Nonalcoholic fatty liver disease [None]

NARRATIVE: CASE EVENT DATE: 20190101
